FAERS Safety Report 17402738 (Version 2)
Quarter: 2020Q1

REPORT INFORMATION
  Report Type: Spontaneous
  Country: DE (occurrence: DE)
  Receive Date: 20200211
  Receipt Date: 20200214
  Transmission Date: 20200409
  Serious: Yes (Hospitalization)
  Sender: FDA-Public Use
  Company Number: DE-MYLANLABS-2020M1014536

PATIENT
  Age: 83 Year
  Sex: Female
  Weight: 80 kg

DRUGS (14)
  1. AMLODIPINE [Suspect]
     Active Substance: AMLODIPINE BESYLATE
     Indication: PRODUCT USED FOR UNKNOWN INDICATION
     Dosage: 5 MILLIGRAM (5 MG, 0-0-0-1)
  2. METAMIZOL                          /06276701/ [Concomitant]
     Active Substance: METAMIZOLE
     Dosage: 500 MILLIGRAM (500 MG, 1-1-1-1)
  3. ROTIGOTINE [Concomitant]
     Active Substance: ROTIGOTINE
     Dosage: UNK (1-0-0-0)
  4. BENSERAZIDE HYDROCHLORIDE W/LEVODOPA [Concomitant]
     Active Substance: BENSERAZIDE HYDROCHLORIDE\LEVODOPA
     Dosage: UNK (25|100 MG, 0-0-0-1)
  5. NALOXONE/OXYCODONE [Suspect]
     Active Substance: NALOXONE HYDROCHLORIDE\OXYCODONE HYDROCHLORIDE
     Indication: PRODUCT USED FOR UNKNOWN INDICATION
     Dosage: UNK (5|10 MG, 1-0-1-0)
  6. TORASEMID [Concomitant]
     Active Substance: TORSEMIDE
     Dosage: 10 MILLIGRAM (10 MG, 1-0-0-0)
  7. COLECALCIFEROL [Concomitant]
     Active Substance: CHOLECALCIFEROL
     Dosage: UNK (20.000 IE / WOCHE, 1-0-0-0)
  8. ACETYLSALICYLIC ACID [Concomitant]
     Active Substance: ASPIRIN
     Dosage: 100 MILLIGRAM (100 MG, 0-1-0-0)
  9. SIMVASTATIN. [Concomitant]
     Active Substance: SIMVASTATIN
     Dosage: 20 MILLIGRAM (20 MG, 0-0-0-1)
  10. TICAGRELOR. [Concomitant]
     Active Substance: TICAGRELOR
     Dosage: 90 MILLIGRAM (90 MG, 1-0-1-0)
  11. PANTOPRAZOL                        /01263201/ [Concomitant]
     Active Substance: PANTOPRAZOLE
     Dosage: 40 MILLIGRAM (40 MG, 1-0-0-0)
  12. KREON [Concomitant]
     Active Substance: PANCRELIPASE
     Dosage: UNK (1-1-1-0)
  13. RAMIPRIL. [Concomitant]
     Active Substance: RAMIPRIL
     Dosage: 5 MILLIGRAM (5 MG, 1-0-0.5-0)
  14. CARVEDILOL. [Concomitant]
     Active Substance: CARVEDILOL
     Dosage: 6.25 MILLIGRAM (6.25 MG, 1-0-0-0)

REACTIONS (2)
  - Nausea [Unknown]
  - Acute respiratory failure [Unknown]
